FAERS Safety Report 12728230 (Version 1)
Quarter: 2016Q3

REPORT INFORMATION
  Report Type: Spontaneous
  Country: US (occurrence: US)
  Receive Date: 20160907
  Receipt Date: 20160907
  Transmission Date: 20161109
  Serious: Yes (Life-Threatening)
  Sender: FDA-Public Use
  Company Number: None

PATIENT
  Age: 53 Year
  Sex: Male
  Weight: 87.3 kg

DRUGS (1)
  1. DOCETAXEL SANOFI-AVENTIS [Suspect]
     Active Substance: DOCETAXEL
     Indication: NASOPHARYNGEAL CANCER STAGE IV
     Dosage: OTHER STRENGTH:;OTHER DOSE:;OTHER FREQUENCY:Q3 WEEKS;OTHER ROUTE:
     Route: 040

REACTIONS (4)
  - Drooling [None]
  - Rash [None]
  - Urinary incontinence [None]
  - Muscle spasms [None]

NARRATIVE: CASE EVENT DATE: 20160906
